FAERS Safety Report 5724342-2 (Version None)
Quarter: 2008Q2

REPORT INFORMATION
  Report Type: 
  Country: None (occurrence: None)
  Receive Date: 20080430
  Receipt Date: 20080418
  Transmission Date: 20081010
  Serious: Yes (Other)
  Sender: FDA-Public Use
  Company Number: US-PFIZER INC-2008025602

PATIENT
  Sex: Male
  Weight: 13 kg

DRUGS (4)
  1. SOLU-MEDROL [Suspect]
     Indication: CHRONIC INFLAMMATORY DEMYELINATING POLYRADICULONEUROPATHY
     Route: 042
  2. IMMUNE GLOBULIN (HUMAN) [Concomitant]
     Route: 042
  3. ZANTAC [Concomitant]
  4. RITUXAN [Concomitant]

REACTIONS (1)
  - CD4 LYMPHOCYTES DECREASED [None]
